FAERS Safety Report 16982147 (Version 2)
Quarter: 2019Q4

REPORT INFORMATION
  Report Type: Spontaneous
  Country: US (occurrence: US)
  Receive Date: 20191101
  Receipt Date: 20191217
  Transmission Date: 20200122
  Serious: No
  Sender: FDA-Public Use
  Company Number: US-APOTEX-2019AP023425

PATIENT
  Sex: Male

DRUGS (1)
  1. MOMETASONE FUROATE NASAL SPRAY [Suspect]
     Active Substance: MOMETASONE FUROATE
     Indication: PRODUCT USED FOR UNKNOWN INDICATION
     Dosage: 50 ?G, QD, 2 SQUIRTS IN EACH NOSTRIL
     Route: 065
     Dates: start: 201901

REACTIONS (4)
  - Sinonasal obstruction [Unknown]
  - Drug ineffective [Unknown]
  - Mucosal dryness [Unknown]
  - Sinus congestion [Unknown]
